FAERS Safety Report 5816882-2 (Version None)
Quarter: 2008Q3

REPORT INFORMATION
  Report Type: 
  Country: None (occurrence: None)
  Receive Date: 20080721
  Receipt Date: 20080711
  Transmission Date: 20090109
  Serious: Yes (Congenital Anomaly)
  Sender: FDA-Public Use
  Company Number: US-MERCK-01093260

PATIENT
  Sex: Male
  Weight: 4 kg

DRUGS (6)
  1. SINGULAIR [Suspect]
     Indication: ASTHMA
     Route: 064
     Dates: start: 19990101
  2. ADVAIR DISKUS 100/50 [Concomitant]
     Route: 064
     Dates: start: 20010101
  3. ADVAIR DISKUS 100/50 [Concomitant]
     Route: 064
  4. ZYRTEC [Concomitant]
     Route: 064
     Dates: start: 19990101
  5. ALBUTEROL [Concomitant]
     Route: 064
  6. VITAMINS (UNSPECIFIED) [Concomitant]
     Route: 064
     Dates: start: 20010101

REACTIONS (3)
  - CONGENITAL GENITOURINARY ABNORMALITY [None]
  - HYPOSPADIAS [None]
  - JAUNDICE NEONATAL [None]
